FAERS Safety Report 17186550 (Version 2)
Quarter: 2020Q1

REPORT INFORMATION
  Report Type: Report from Study
  Country: IT (occurrence: IT)
  Receive Date: 20191220
  Receipt Date: 20200103
  Transmission Date: 20200409
  Serious: Yes (Life-Threatening, Hospitalization)
  Sender: FDA-Public Use
  Company Number: IT-MYLANLABS-2019M1127645

PATIENT
  Age: 48 Year
  Sex: Male
  Weight: 58 kg

DRUGS (4)
  1. BINOCRIT [Suspect]
     Active Substance: ERYTHROPOIETIN
     Indication: ANAEMIA
     Dosage: 5000 INTERNATIONAL UNIT, 3XW(5000 IU, TIW)
     Route: 058
     Dates: start: 20181005
  2. PREDNISONE. [Suspect]
     Active Substance: PREDNISONE
     Indication: RENAL TRANSPLANT
     Dosage: 5 MILLIGRAM, QD
     Route: 065
     Dates: start: 20170904
  3. BINOCRIT [Suspect]
     Active Substance: ERYTHROPOIETIN
     Dosage: 5000 INTERNATIONAL UNIT, 3XW(5000 IU, TIWW)
     Route: 058
     Dates: start: 20190831
  4. SANDIMMUN NEORAL [Suspect]
     Active Substance: CYCLOSPORINE
     Indication: RENAL TRANSPLANT
     Dosage: 100 MILLIGRAM, QD (50 MG, BID)
     Route: 065
     Dates: start: 20170904, end: 20190903

REACTIONS (3)
  - Pneumonia [Unknown]
  - Chest pain [Unknown]
  - Haemoptysis [Unknown]

NARRATIVE: CASE EVENT DATE: 20190903
